FAERS Safety Report 8222629-5 (Version None)
Quarter: 2012Q1

REPORT INFORMATION
  Report Type: 
  Country: None (occurrence: None)
  Receive Date: 20120315
  Receipt Date: 20120306
  Transmission Date: 20120608
  Serious: Yes (Death, Life-Threatening)
  Sender: FDA-Public Use
  Company Number: 2012SP012196

PATIENT
  Age: 45 Year
  Sex: Male

DRUGS (4)
  1. PROMETHAZINE [Suspect]
     Indication: PRODUCT USED FOR UNKNOWN INDICATION
     Dosage: 50 MG;QD;PO
     Route: 048
     Dates: start: 20111024, end: 20111105
  2. MIRTAZAPINE [Suspect]
     Indication: DEPRESSION
     Dosage: 15 MG;QD;PO, 30 MG;QD;PO, 45 MG;QD;PO
     Route: 048
     Dates: start: 20111101, end: 20111105
  3. MIRTAZAPINE [Suspect]
     Indication: DEPRESSION
     Dosage: 15 MG;QD;PO, 30 MG;QD;PO, 45 MG;QD;PO
     Route: 048
     Dates: start: 20111031, end: 20111031
  4. MIRTAZAPINE [Suspect]
     Indication: DEPRESSION
     Dosage: 15 MG;QD;PO, 30 MG;QD;PO, 45 MG;QD;PO
     Route: 048
     Dates: start: 20111029, end: 20111030

REACTIONS (1)
  - COMPLETED SUICIDE [None]
